FAERS Safety Report 8141155-5 (Version None)
Quarter: 2012Q1

REPORT INFORMATION
  Report Type: 
  Country: None (occurrence: None)
  Receive Date: 20120216
  Receipt Date: 20120213
  Transmission Date: 20120608
  Serious: No
  Sender: FDA-Public Use
  Company Number: US-PFIZER INC-2012038510

PATIENT
  Sex: Male
  Weight: 37.642 kg

DRUGS (5)
  1. ZOLOFT [Concomitant]
     Dosage: 25 MG, UNK
  2. MELATONIN [Concomitant]
     Dosage: 1 MG, UNK
  3. STOOL SOFTENER [Concomitant]
     Dosage: 100-30 (UNITS NOT PROVIDED)
  4. GENOTROPIN [Suspect]
     Dosage: 1 MG, 1X/DAY, 7 DAYS A WEEK
     Route: 058
  5. ADDERALL 5 [Concomitant]
     Dosage: 12.5 MG, UNK

REACTIONS (2)
  - INJECTION SITE HAEMORRHAGE [None]
  - DIZZINESS [None]
